FAERS Safety Report 14902451 (Version 3)
Quarter: 2018Q2

REPORT INFORMATION
  Report Type: Spontaneous
  Country: US (occurrence: US)
  Receive Date: 20180516
  Receipt Date: 20180622
  Transmission Date: 20180711
  Serious: No
  Sender: FDA-Public Use
  Company Number: US-TEVA-2018-US-893725

PATIENT

DRUGS (1)
  1. ZINC. [Suspect]
     Active Substance: ZINC
     Dosage: 2 PERCENT/0.1 PERCENT

REACTIONS (1)
  - Facial pain [Unknown]
